FAERS Safety Report 13604151 (Version 1)
Quarter: 2017Q2

REPORT INFORMATION
  Report Type: Spontaneous
  Country: US (occurrence: US)
  Receive Date: 20170601
  Receipt Date: 20170601
  Transmission Date: 20170830
  Serious: Yes (Other)
  Sender: FDA-Public Use
  Company Number: None

PATIENT
  Age: 54 Year
  Sex: Female

DRUGS (1)
  1. LITHIUM 300MG ER [Suspect]
     Active Substance: LITHIUM CARBONATE
     Dosage: QUANTITY:180 TABLET(S); AT BEDTIME?
     Route: 048
     Dates: start: 20090901

REACTIONS (4)
  - Product substitution issue [None]
  - Pain [None]
  - Abdominal pain upper [None]
  - Middle insomnia [None]

NARRATIVE: CASE EVENT DATE: 20170531
